FAERS Safety Report 9353185 (Version 1)
Quarter: 2013Q2

REPORT INFORMATION
  Report Type: Spontaneous
  Country: US (occurrence: None)
  Receive Date: 20130612
  Receipt Date: 20130612
  Transmission Date: 20140414
  Serious: Yes (Other)
  Sender: FDA-Public Use
  Company Number: JPI-P-032689

PATIENT
  Age: 72 Year
  Sex: Female
  Weight: 58.97 kg

DRUGS (8)
  1. XYREM [Suspect]
     Indication: SLEEP DISORDER
     Route: 048
     Dates: start: 20060315
  2. LEVOTHYROXINE SODIUM (UNKNOWN) [Concomitant]
  3. PROPRANOLOL HCL (UNKNOWN) [Concomitant]
  4. ATORVASTATIN CALCIUM (UNKNOWN) [Concomitant]
  5. BUSPIRONE HYDROCHLORIDE (UNKNOWN) [Concomitant]
  6. QUETIAPINE FUMARATE (UNKNOWN) [Concomitant]
  7. ESCITALOPRAM OXALATE (UNKNOWN) [Concomitant]
  8. PREGABALIN (UNKNOWN) [Concomitant]

REACTIONS (2)
  - Arthritis [None]
  - Condition aggravated [None]
